FAERS Safety Report 13779468 (Version 6)
Quarter: 2017Q3

REPORT INFORMATION
  Report Type: Report from Study
  Country: US (occurrence: US)
  Receive Date: 20170721
  Receipt Date: 20170831
  Transmission Date: 20171127
  Serious: Yes (Hospitalization)
  Sender: FDA-Public Use
  Company Number: US-AMGEN-USASL2017107192

PATIENT
  Age: 64 Year
  Sex: Female

DRUGS (2)
  1. SULFASALAZINE. [Concomitant]
     Active Substance: SULFASALAZINE
     Dosage: UNK
     Dates: start: 20170705
  2. ENBREL [Suspect]
     Active Substance: ETANERCEPT
     Indication: RHEUMATOID ARTHRITIS
     Dosage: 50 MG, QWK
     Route: 065
     Dates: start: 201707, end: 20170721

REACTIONS (13)
  - Malaise [Unknown]
  - Asthenia [Unknown]
  - Pyrexia [Unknown]
  - Injection site erythema [Unknown]
  - Injection site bruising [Recovering/Resolving]
  - Urticaria [Unknown]
  - Chest pain [Unknown]
  - Fatigue [Unknown]
  - Dysgeusia [Unknown]
  - Headache [Unknown]
  - Abdominal pain [Unknown]
  - Paraesthesia oral [Recovered/Resolved]
  - Generalised erythema [Unknown]

NARRATIVE: CASE EVENT DATE: 2017
